FAERS Safety Report 24444846 (Version 1)
Quarter: 2024Q4

REPORT INFORMATION
  Report Type: Spontaneous
  Country: US (occurrence: None)
  Receive Date: 20241015
  Receipt Date: 20241015
  Transmission Date: 20250114
  Serious: Yes (Other)
  Sender: Public
  Company Number: None

PATIENT
  Age: 52 Year
  Sex: Female
  Weight: 63 kg

DRUGS (6)
  1. ESTRADIOL [Suspect]
     Active Substance: ESTRADIOL
     Indication: Menopause
     Dosage: OTHER FREQUENCY : WEEKLY;?
     Route: 062
     Dates: start: 20240901, end: 20241001
  2. ESTRADIOL [Concomitant]
     Active Substance: ESTRADIOL
  3. PROGESTERONE [Concomitant]
     Active Substance: PROGESTERONE
  4. TESTOSTERONE [Concomitant]
     Active Substance: TESTOSTERONE
  5. FISH OIL [Concomitant]
     Active Substance: FISH OIL
  6. COLLAGEN [Concomitant]
     Active Substance: COLLAGEN

REACTIONS (3)
  - Thermal burn [None]
  - Contusion [None]
  - Application site vesicles [None]

NARRATIVE: CASE EVENT DATE: 20241001
